FAERS Safety Report 5734639-8 (Version None)
Quarter: 2008Q2

REPORT INFORMATION
  Report Type: 
  Country: None (occurrence: None)
  Receive Date: 20080512
  Receipt Date: 20080430
  Transmission Date: 20081010
  Serious: Yes (Other)
  Sender: FDA-Public Use
  Company Number: PHHY2008BR06892

PATIENT
  Age: 52 Year
  Sex: Female

DRUGS (4)
  1. DIOVAN HCT [Suspect]
     Indication: HYPERTENSION
     Dosage: UNK, BID
     Route: 048
  2. AMIODARONE HCL [Concomitant]
     Dosage: 200 MG, QD
  3. DIOVAN [Suspect]
     Dosage: 80 MG, UNK
  4. DIOVAN [Suspect]
     Dosage: 160 MG, UNK

REACTIONS (3)
  - BLOOD PRESSURE INCREASED [None]
  - DEPRESSION [None]
  - NAUSEA [None]
